FAERS Safety Report 9912127 (Version 2)
Quarter: 2014Q2

REPORT INFORMATION
  Report Type: Spontaneous
  Country: US (occurrence: US)
  Receive Date: 20140219
  Receipt Date: 20140507
  Transmission Date: 20141212
  Serious: Yes (Hospitalization)
  Sender: FDA-Public Use
  Company Number: US-BRISTOL-MYERS SQUIBB COMPANY-20192670

PATIENT
  Age: 64 Year
  Sex: Female

DRUGS (2)
  1. ABILIFY [Suspect]
     Route: 048
     Dates: start: 2013
  2. ABILIFY MAINTENA INJECTION [Suspect]
     Indication: SCHIZOAFFECTIVE DISORDER
     Dosage: RECENT DOSE ON 27-JAN-2014
     Route: 030
     Dates: start: 201312

REACTIONS (4)
  - Psychiatric symptom [Recovering/Resolving]
  - Mania [Recovering/Resolving]
  - Treatment noncompliance [Recovering/Resolving]
  - Off label use [Recovering/Resolving]
